FAERS Safety Report 8011881-7 (Version None)
Quarter: 2011Q4

REPORT INFORMATION
  Report Type: 
  Country: None (occurrence: None)
  Receive Date: 20111228
  Receipt Date: 20111219
  Transmission Date: 20120403
  Serious: Yes (Other)
  Sender: FDA-Public Use
  Company Number: US-ABBOTT-11P-163-0884879-00

PATIENT
  Sex: Female
  Weight: 83.082 kg

DRUGS (10)
  1. FOLIC ACID [Concomitant]
     Indication: VITAMIN SUPPLEMENTATION
  2. NAPROXEN [Concomitant]
     Indication: RHEUMATOID ARTHRITIS
  3. HUMIRA [Suspect]
     Dates: start: 20111116
  4. CYMBALTA [Concomitant]
     Indication: RHEUMATOID ARTHRITIS
  5. HUMIRA [Suspect]
     Indication: RHEUMATOID ARTHRITIS
     Dates: start: 20110201, end: 20110601
  6. VITAMIN C [Concomitant]
     Indication: VITAMIN SUPPLEMENTATION
  7. CALCIUM ACETATE [Concomitant]
     Indication: MINERAL SUPPLEMENTATION
  8. MULTI-VITAMIN [Concomitant]
     Indication: VITAMIN SUPPLEMENTATION
  9. METHOTREXATE [Concomitant]
     Indication: RHEUMATOID ARTHRITIS
     Dosage: 6 PILLS ONCE A WEEK
  10. HUMIRA [Suspect]
     Dates: end: 20101101

REACTIONS (6)
  - SKIN IRRITATION [None]
  - ARTHRITIS [None]
  - INFECTED BUNION [None]
  - OSTEOARTHRITIS [None]
  - OEDEMA PERIPHERAL [None]
  - WOUND SECRETION [None]
